FAERS Safety Report 5034310-4 (Version None)
Quarter: 2006Q2

REPORT INFORMATION
  Report Type: 
  Country: None (occurrence: None)
  Receive Date: 20060626
  Receipt Date: 20060519
  Transmission Date: 20061013
  Serious: Yes (Hospitalization, Disabling)
  Sender: FDA-Public Use
  Company Number: PHFR2006GB01763

PATIENT
  Age: 69 Year
  Sex: Female

DRUGS (2)
  1. LETROZOLE [Concomitant]
     Indication: BREAST CANCER METASTATIC
     Dosage: 2.5 MG
     Route: 048
     Dates: start: 20030924
  2. ZOMETA [Suspect]
     Indication: METASTASES TO BONE
     Dosage: 4 MG, QMO
     Route: 042
     Dates: start: 20030521, end: 20051108

REACTIONS (2)
  - OSTEONECROSIS [None]
  - TOOTH EXTRACTION [None]
